FAERS Safety Report 7941662-1 (Version None)
Quarter: 2011Q4

REPORT INFORMATION
  Report Type: 
  Country: None (occurrence: None)
  Receive Date: 20111128
  Receipt Date: 20111128
  Transmission Date: 20120403
  Serious: Yes (Other)
  Sender: FDA-Public Use
  Company Number: None

PATIENT
  Age: 38 Year
  Sex: Female
  Weight: 77.11 kg

DRUGS (1)
  1. LEXAPRO [Suspect]
     Indication: ANXIETY
     Dosage: 7.5 MG
     Route: 048
     Dates: start: 20111121, end: 20111122

REACTIONS (2)
  - GASTROINTESTINAL DISORDER [None]
  - ANXIETY [None]
